FAERS Safety Report 23824852 (Version 1)
Quarter: 2024Q2

REPORT INFORMATION
  Report Type: Spontaneous
  Country: FR (occurrence: FR)
  Receive Date: 20240507
  Receipt Date: 20240507
  Transmission Date: 20240716
  Serious: Yes (Other)
  Sender: FDA-Public Use
  Company Number: FR-AFSSAPS-NY2024000466

PATIENT
  Age: 71 Year
  Sex: Male
  Weight: 80 kg

DRUGS (5)
  1. POLYETHYLENE GLYCOL 4000 [Suspect]
     Active Substance: POLYETHYLENE GLYCOL 4000
     Indication: Constipation
     Dosage: 1 DOSAGE FORM,THE EVENING
     Route: 048
     Dates: start: 20240205, end: 20240205
  2. FLECAINIDE [Suspect]
     Active Substance: FLECAINIDE
     Indication: Atrial fibrillation
     Dosage: 300 MILLIGRAM,THE EVENING
     Route: 048
     Dates: start: 20240205, end: 20240205
  3. TAHOR [Suspect]
     Active Substance: ATORVASTATIN CALCIUM
     Indication: Cardiovascular event prophylaxis
     Dosage: 20 MILLIGRAM, THE EVENING
     Route: 048
     Dates: start: 20240205, end: 20240205
  4. ELIQUIS [Suspect]
     Active Substance: APIXABAN
     Indication: Atrial fibrillation
     Dosage: 10 MILLIGRAM, THE EVENING
     Route: 048
     Dates: start: 20240205, end: 20240205
  5. VALSARTAN [Suspect]
     Active Substance: VALSARTAN
     Indication: Atrial fibrillation
     Dosage: 160 MILLIGRAM, THE EVENING
     Route: 048
     Dates: start: 20240205, end: 20240205

REACTIONS (2)
  - Hypertensive crisis [Recovered/Resolved]
  - Duplicate therapy error [Recovered/Resolved]

NARRATIVE: CASE EVENT DATE: 20240205
